FAERS Safety Report 16262610 (Version 1)
Quarter: 2019Q2

REPORT INFORMATION
  Report Type: Report from Study
  Country: BR (occurrence: BR)
  Receive Date: 20190502
  Receipt Date: 20190502
  Transmission Date: 20190711
  Serious: Yes (Death)
  Sender: FDA-Public Use
  Company Number: BR-TAKEDA-2018MPI017525

PATIENT
  Age: 84 Year
  Sex: Male

DRUGS (21)
  1. LENALIDOMIDE [Suspect]
     Active Substance: LENALIDOMIDE
     Dosage: 15 MILLIGRAM, QD
     Route: 048
     Dates: start: 2019
  2. LENALIDOMIDE [Suspect]
     Active Substance: LENALIDOMIDE
     Indication: PLASMA CELL MYELOMA
     Dosage: 25 MILLIGRAM, QD
     Route: 048
  3. ACYCLOVIR                          /00587301/ [Concomitant]
     Active Substance: ACYCLOVIR
     Dosage: UNK
     Route: 065
  4. DIMORF [Concomitant]
     Active Substance: MORPHINE SULFATE
     Dosage: UNK
     Route: 065
  5. LUFTAL                             /00159501/ [Concomitant]
     Dosage: UNK
     Route: 065
  6. ARTROLIVE [Concomitant]
     Active Substance: CHONDROITIN SULFATE (BOVINE)\GLUCOSAMINE SULFATE
     Dosage: UNK
     Route: 065
  7. BACTRIM [Concomitant]
     Active Substance: SULFAMETHOXAZOLE\TRIMETHOPRIM
     Dosage: UNK
     Route: 065
  8. COMBODART [Concomitant]
     Active Substance: DUTASTERIDE\TAMSULOSIN
     Dosage: UNK
     Route: 065
  9. TIMOLOL. [Concomitant]
     Active Substance: TIMOLOL
     Dosage: UNK
     Route: 065
  10. PLASIL                             /00041901/ [Concomitant]
     Active Substance: METOCLOPRAMIDE
     Dosage: UNK
     Route: 065
  11. FENERGAN                           /00033001/ [Concomitant]
     Active Substance: PROMETHAZINE HYDROCHLORIDE
     Dosage: UNK
  12. DEXAMETHASONE. [Suspect]
     Active Substance: DEXAMETHASONE
     Indication: PLASMA CELL MYELOMA
     Dosage: UNK
     Route: 065
  13. MINERAL OIL. [Concomitant]
     Active Substance: MINERAL OIL
     Dosage: UNK
     Route: 065
  14. OMEPRAZOLE. [Concomitant]
     Active Substance: OMEPRAZOLE
     Dosage: UNK
     Route: 065
  15. DIPYRONE [Concomitant]
     Active Substance: DIPYRONE
     Dosage: UNK
     Route: 065
  16. ACETYLSALICYLIC ACID [Concomitant]
     Active Substance: ASPIRIN
     Dosage: UNK
     Route: 065
  17. FUROSEMIDE. [Concomitant]
     Active Substance: FUROSEMIDE
     Dosage: UNK
     Route: 065
  18. MOTORE [Concomitant]
     Dosage: UNK
     Route: 065
  19. IXAZOMIB [Suspect]
     Active Substance: IXAZOMIB
     Indication: PLASMA CELL MYELOMA
     Dosage: 4 MILLIGRAM, UNK
     Route: 048
     Dates: start: 20180905
  20. ZOLPIDEM [Suspect]
     Active Substance: ZOLPIDEM\ZOLPIDEM TARTRATE
     Indication: INSOMNIA
     Dosage: UNK
     Route: 065
  21. RIVOTRIL [Suspect]
     Active Substance: CLONAZEPAM
     Indication: INSOMNIA
     Dosage: UNK
     Route: 048

REACTIONS (10)
  - Irritability [Not Recovered/Not Resolved]
  - Pigmentation disorder [Recovering/Resolving]
  - Dry skin [Unknown]
  - Inappropriate schedule of product administration [Unknown]
  - Gait disturbance [Not Recovered/Not Resolved]
  - Somnolence [Unknown]
  - Insomnia [Not Recovered/Not Resolved]
  - Decreased appetite [Unknown]
  - Incorrect dose administered [Unknown]
  - Death [Fatal]

NARRATIVE: CASE EVENT DATE: 20190421
